FAERS Safety Report 12201110 (Version 1)
Quarter: 2016Q1

REPORT INFORMATION
  Report Type: Spontaneous
  Country: US (occurrence: US)
  Receive Date: 20160322
  Receipt Date: 20160322
  Transmission Date: 20160526
  Serious: No
  Sender: FDA-Public Use
  Company Number: US-SA-2015SA088250

PATIENT
  Age: 54 Year
  Sex: Female

DRUGS (1)
  1. TRIAMCINOLONE ACETONIDE. [Suspect]
     Active Substance: TRIAMCINOLONE ACETONIDE
     Indication: MULTIPLE ALLERGIES
     Route: 065

REACTIONS (5)
  - Lacrimation increased [Unknown]
  - Eye pruritus [Unknown]
  - Drug ineffective [Unknown]
  - Nasal congestion [Unknown]
  - Dyspnoea [Unknown]
